FAERS Safety Report 25640162 (Version 1)
Quarter: 2025Q3

REPORT INFORMATION
  Report Type: Spontaneous
  Country: US (occurrence: US)
  Receive Date: 20250804
  Receipt Date: 20250804
  Transmission Date: 20251021
  Serious: Yes (Life-Threatening, Other)
  Sender: EXELA PHARMA SCIENCES
  Company Number: US-EXELAPHARMA-2025EXLA00139

PATIENT

DRUGS (4)
  1. FENTANYL CITRATE [Suspect]
     Active Substance: FENTANYL CITRATE
     Indication: Epidural analgesia
     Route: 008
  2. FENTANYL CITRATE [Suspect]
     Active Substance: FENTANYL CITRATE
     Route: 008
  3. BUPIVACAINE [Concomitant]
     Active Substance: BUPIVACAINE
     Indication: Epidural analgesia
  4. LIDOCAINE [Concomitant]
     Active Substance: LIDOCAINE
     Indication: Epidural analgesia
     Route: 008

REACTIONS (2)
  - Neonatal respiratory depression [Recovered/Resolved]
  - Foetal exposure during delivery [Unknown]
